FAERS Safety Report 14741129 (Version 1)
Quarter: 2018Q2

REPORT INFORMATION
  Report Type: Spontaneous
  Country: US (occurrence: US)
  Receive Date: 20180410
  Receipt Date: 20180410
  Transmission Date: 20180711
  Serious: Yes (Other)
  Sender: FDA-Public Use
  Company Number: US-RISING PHARMACEUTICALS, INC.-2018RIS00172

PATIENT
  Age: 32 Year
  Sex: Male

DRUGS (1)
  1. LANSOPRAZOLE/AMOXICILLIN/CLARITHROMYCIN [Suspect]
     Active Substance: AMOXICILLIN\CLARITHROMYCIN\LANSOPRAZOLE
     Indication: HELICOBACTER INFECTION
     Route: 065

REACTIONS (1)
  - Lichenoid keratosis [Recovering/Resolving]
